FAERS Safety Report 15121376 (Version 2)
Quarter: 2018Q3

REPORT INFORMATION
  Report Type: Spontaneous
  Country: IT (occurrence: IT)
  Receive Date: 20180709
  Receipt Date: 20180801
  Transmission Date: 20181010
  Serious: Yes (Death, Other)
  Sender: FDA-Public Use
  Company Number: IT-BAYER-2018-123846

PATIENT
  Sex: Female

DRUGS (2)
  1. STIVARGA [Suspect]
     Active Substance: REGORAFENIB
     Indication: COLON CANCER
     Dosage: DAILY DOSE 80 MG DAY (EVERY 3 OVER 4 WEEKS)
     Route: 048
     Dates: start: 201509
  2. STIVARGA [Suspect]
     Active Substance: REGORAFENIB
     Indication: COLON CANCER
     Dosage: 4 CYCLES WITH ADJUSTMENT OF THERAPY UP TO 40MG / DAY, EVERY OTHER DAY
     Route: 048
     Dates: end: 2016

REACTIONS (6)
  - Dysphonia [None]
  - General physical health deterioration [Fatal]
  - Colon cancer [Fatal]
  - Thyroid disorder [None]
  - Hypertension [None]
  - Colon cancer [None]

NARRATIVE: CASE EVENT DATE: 201601
